FAERS Safety Report 9669459 (Version 1)
Quarter: 2013Q4

REPORT INFORMATION
  Report Type: Spontaneous
  Country: GB (occurrence: GB)
  Receive Date: 20131105
  Receipt Date: 20131105
  Transmission Date: 20140711
  Serious: Yes (Other)
  Sender: FDA-Public Use
  Company Number: GB-DRREDDYS-USA/UKI/13/0035399

PATIENT
  Age: 71 Year
  Sex: Female

DRUGS (4)
  1. OMEPRAZOLE [Suspect]
     Indication: DUODENAL ULCER
     Route: 065
  2. IVIG [Suspect]
     Indication: MONOCLONAL GAMMOPATHY
     Route: 042
  3. IVIG [Suspect]
     Indication: CHRONIC INFLAMMATORY DEMYELINATING POLYRADICULONEUROPATHY
  4. INDAPAMIDE [Concomitant]
     Indication: PRODUCT USED FOR UNKNOWN INDICATION
     Route: 065

REACTIONS (6)
  - Hypomagnesaemia [Recovered/Resolved]
  - Hypocalcaemia [Recovered/Resolved]
  - Hypokalaemia [Recovered/Resolved]
  - Chronic inflammatory demyelinating polyradiculoneuropathy [Recovered/Resolved]
  - Diarrhoea [Recovered/Resolved]
  - Night sweats [Unknown]
